FAERS Safety Report 13368897 (Version 1)
Quarter: 2017Q1

REPORT INFORMATION
  Report Type: Spontaneous
  Country: US (occurrence: US)
  Receive Date: 20170323
  Receipt Date: 20170323
  Transmission Date: 20170429
  Serious: Yes (Hospitalization, Disabling)
  Sender: FDA-Public Use
  Company Number: None

PATIENT
  Age: 55 Year
  Sex: Female
  Weight: 68.55 kg

DRUGS (5)
  1. PROTONIX [Concomitant]
     Active Substance: PANTOPRAZOLE SODIUM
  2. TUMS [Concomitant]
     Active Substance: CALCIUM CARBONATE
  3. PANTOPRAZOLE GENERIC EQUIVALENT OF PROTONIX [Suspect]
     Active Substance: PANTOPRAZOLE SODIUM
     Indication: GASTROOESOPHAGEAL REFLUX DISEASE
     Dosage: 30 DAY ONCE A DAY BY MOUTH AND INJECTION
     Route: 048
     Dates: start: 20170219, end: 20170220
  4. FISH OIL [Concomitant]
     Active Substance: FISH OIL
  5. MYLANTA [Concomitant]
     Active Substance: ALUMINUM HYDROXIDE\DIMETHICONE\MAGNESIUM HYDROXIDE

REACTIONS (8)
  - Product quality issue [None]
  - Abdominal pain upper [None]
  - Headache [None]
  - Paraesthesia [None]
  - Anxiety [None]
  - Back pain [None]
  - Chest pain [None]
  - Dyspnoea [None]

NARRATIVE: CASE EVENT DATE: 20170219
